FAERS Safety Report 17437150 (Version 5)
Quarter: 2021Q1

REPORT INFORMATION
  Report Type: Spontaneous
  Country: FR (occurrence: FR)
  Receive Date: 20200219
  Receipt Date: 20210317
  Transmission Date: 20210419
  Serious: Yes (Other)
  Sender: FDA-Public Use
  Company Number: NVSC2020FR043746

PATIENT
  Age: 9 Year
  Sex: Male

DRUGS (52)
  1. MYCOPHENOLATE MOFETIL. [Suspect]
     Active Substance: MYCOPHENOLATE MOFETIL
     Indication: ACUTE GRAFT VERSUS HOST DISEASE IN INTESTINE
  2. RITUXIMAB. [Suspect]
     Active Substance: RITUXIMAB
     Indication: IMMUNOSUPPRESSION
     Dosage: UNK UNK
     Route: 065
  3. INFLIXIMAB [Suspect]
     Active Substance: INFLIXIMAB
     Indication: CHRONIC GRAFT VERSUS HOST DISEASE IN SKIN
  4. ARACYTINE [Suspect]
     Active Substance: CYTARABINE
     Indication: CHEMOTHERAPY
     Dosage: 200 MG/M2
     Route: 065
  5. ARACYTINE [Suspect]
     Active Substance: CYTARABINE
     Dosage: UNK, CYCLIC
     Route: 065
  6. ZOVIRAX [Suspect]
     Active Substance: ACYCLOVIR
     Indication: PRODUCT USED FOR UNKNOWN INDICATION
     Dosage: UNK
     Route: 065
  7. PROGRAF [Suspect]
     Active Substance: TACROLIMUS
     Indication: GRAFT VERSUS HOST DISEASE
     Dosage: 0.5 MG, EVERY OTHER DAY ( LAST ADMINISTRATION DATE 14 OCT 2010)
     Route: 048
     Dates: start: 200906
  8. PROGRAF [Suspect]
     Active Substance: TACROLIMUS
     Indication: IMMUNOSUPPRESSION
  9. MYCOPHENOLATE MOFETIL. [Suspect]
     Active Substance: MYCOPHENOLATE MOFETIL
     Indication: ACUTE GRAFT VERSUS HOST DISEASE IN SKIN
  10. RITUXIMAB. [Suspect]
     Active Substance: RITUXIMAB
     Indication: CHRONIC GRAFT VERSUS HOST DISEASE
  11. INFLIXIMAB [Suspect]
     Active Substance: INFLIXIMAB
     Indication: IMMUNOSUPPRESSION
     Dosage: UNK
     Route: 065
  12. IDARUBICIN [Suspect]
     Active Substance: IDARUBICIN
     Indication: ACUTE MYELOID LEUKAEMIA
     Dosage: 8 MG/M2, QD (1/DAY), D2, D4, J6
     Route: 065
  13. THYMOGLOBULIN [Suspect]
     Active Substance: LAPINE T-LYMPHOCYTE IMMUNE GLOBULIN
     Indication: GRAFT VERSUS HOST DISEASE
     Dosage: UNK
     Route: 065
  14. ARACYTINE [Suspect]
     Active Substance: CYTARABINE
     Indication: ACUTE MYELOID LEUKAEMIA
     Dosage: 2 MG/M2, QD
     Route: 065
  15. G?CSF [Suspect]
     Active Substance: GRANULOCYTE COLONY-STIMULATING FACTOR NOS
     Indication: ACUTE MYELOID LEUKAEMIA
     Dosage: FROM D1 TO D6
     Route: 065
  16. TEROID [Concomitant]
     Indication: PRODUCT USED FOR UNKNOWN INDICATION
     Dosage: UNK
     Route: 065
  17. CICLOSPORIN [Suspect]
     Active Substance: CYCLOSPORINE
     Indication: GRAFT VERSUS HOST DISEASE
     Dosage: UNK
     Route: 065
  18. AMSACRINE [Suspect]
     Active Substance: AMSACRINE
     Indication: ACUTE MYELOID LEUKAEMIA
     Dosage: 100 MG/M2, Q12H
     Route: 065
  19. AMSACRINE [Suspect]
     Active Substance: AMSACRINE
     Dosage: 100 MG/M2 X 2/DAY, CYCLIC
     Route: 065
  20. TOLNAFTATE. [Concomitant]
     Active Substance: TOLNAFTATE
     Indication: PRODUCT USED FOR UNKNOWN INDICATION
     Dosage: UNK
     Route: 065
  21. BASILIXIMAB [Suspect]
     Active Substance: BASILIXIMAB
     Indication: CHRONIC GRAFT VERSUS HOST DISEASE IN INTESTINE
  22. BASILIXIMAB [Suspect]
     Active Substance: BASILIXIMAB
     Indication: GRAFT VERSUS HOST DISEASE IN LUNG
  23. RITUXIMAB. [Suspect]
     Active Substance: RITUXIMAB
     Indication: CHRONIC GRAFT VERSUS HOST DISEASE IN SKIN
  24. ETOPOSIDE. [Suspect]
     Active Substance: ETOPOSIDE
     Indication: ACUTE MYELOID LEUKAEMIA
     Dosage: 100 MG/M2, QD (1/DAY)
     Route: 065
  25. METHOTREXATE. [Suspect]
     Active Substance: METHOTREXATE
     Indication: PROPHYLAXIS AGAINST GRAFT VERSUS HOST DISEASE
  26. THYMOGLOBULIN [Suspect]
     Active Substance: LAPINE T-LYMPHOCYTE IMMUNE GLOBULIN
     Indication: PROPHYLAXIS AGAINST GRAFT VERSUS HOST DISEASE
  27. NOVANTRONE [Suspect]
     Active Substance: MITOXANTRONE HYDROCHLORIDE
     Indication: ACUTE MYELOID LEUKAEMIA
     Dosage: 10 MG/M2, QD CYCLIC
     Route: 065
  28. BLISTEX ANTIVIRAL [Concomitant]
     Indication: PRODUCT USED FOR UNKNOWN INDICATION
     Dosage: UNK
     Route: 065
  29. RITUXIMAB. [Suspect]
     Active Substance: RITUXIMAB
     Indication: CHRONIC GRAFT VERSUS HOST DISEASE IN INTESTINE
  30. INFLIXIMAB [Suspect]
     Active Substance: INFLIXIMAB
     Indication: CHRONIC GRAFT VERSUS HOST DISEASE
  31. INFLIXIMAB [Suspect]
     Active Substance: INFLIXIMAB
     Indication: CHRONIC GRAFT VERSUS HOST DISEASE IN INTESTINE
  32. CYCLOPHOSPHAMIDE. [Suspect]
     Active Substance: CYCLOPHOSPHAMIDE
     Indication: BONE MARROW CONDITIONING REGIMEN
     Dosage: 200 MG/KG (50 MILLIGRAM/KILOGRAM, QID)
     Route: 065
  33. ARACYTINE [Suspect]
     Active Substance: CYTARABINE
     Dosage: 200 MG/M2/DAY, CYCLIC
     Route: 065
  34. BASILIXIMAB [Suspect]
     Active Substance: BASILIXIMAB
     Indication: IMMUNOSUPPRESSION
     Dosage: UNK, UNKNOWN FREQ.
     Route: 065
  35. BASILIXIMAB [Suspect]
     Active Substance: BASILIXIMAB
     Indication: CHRONIC GRAFT VERSUS HOST DISEASE IN SKIN
  36. RITUXIMAB. [Suspect]
     Active Substance: RITUXIMAB
     Indication: GRAFT VERSUS HOST DISEASE IN LUNG
  37. INFLIXIMAB [Suspect]
     Active Substance: INFLIXIMAB
     Indication: GRAFT VERSUS HOST DISEASE IN LUNG
  38. BUSULFAN. [Suspect]
     Active Substance: BUSULFAN
     Indication: PRODUCT USED FOR UNKNOWN INDICATION
     Dosage: 1.2 MG/KG
     Route: 065
  39. BUSULFAN. [Suspect]
     Active Substance: BUSULFAN
     Dosage: 4.8 MG/KG (1.2 MILLIGRAM/KILOGRAM, QID)
     Route: 065
  40. AMSACRINE [Suspect]
     Active Substance: AMSACRINE
     Dosage: 200 MG/M2 (100 MILLIGRAM/SQ. METER, BID)
     Route: 065
  41. AMOXICILLIN. [Suspect]
     Active Substance: AMOXICILLIN
     Indication: ANTIBIOTIC PROPHYLAXIS
     Dosage: UNK
     Route: 065
  42. AMPHOTERICIN B. [Concomitant]
     Active Substance: AMPHOTERICIN B
     Indication: PRODUCT USED FOR UNKNOWN INDICATION
     Dosage: UNK
     Route: 065
  43. VORICONAZOLE. [Concomitant]
     Active Substance: VORICONAZOLE
     Indication: PRODUCT USED FOR UNKNOWN INDICATION
     Dosage: UNK
     Route: 065
  44. FLUDARABINE PHOSPHATE. [Suspect]
     Active Substance: FLUDARABINE PHOSPHATE
     Indication: ACUTE MYELOID LEUKAEMIA
     Dosage: 30 MG/M2, ONCE DAILY, FROM D2 TO D6
     Route: 065
  45. METHOTREXATE. [Suspect]
     Active Substance: METHOTREXATE
     Indication: GRAFT VERSUS HOST DISEASE
     Dosage: UNK
     Route: 065
  46. ARACYTINE [Suspect]
     Active Substance: CYTARABINE
     Dosage: UNK, CYCLIC
     Route: 065
  47. DAUNORUBICIN [Suspect]
     Active Substance: DAUNORUBICIN
     Indication: ACUTE MYELOID LEUKAEMIA
     Dosage: 40 MG/M2, QD
     Route: 065
  48. CASPOFUNGIN [Concomitant]
     Active Substance: CASPOFUNGIN
     Indication: PRODUCT USED FOR UNKNOWN INDICATION
     Dosage: UNK
     Route: 065
  49. MYCOPHENOLATE MOFETIL. [Suspect]
     Active Substance: MYCOPHENOLATE MOFETIL
     Indication: IMMUNOSUPPRESSION
     Dosage: UNK
     Route: 065
  50. LEUNASE [Suspect]
     Active Substance: ASPARAGINASE
     Indication: ACUTE MYELOID LEUKAEMIA
     Dosage: UNK, QD
     Route: 065
  51. ARACYTINE [Suspect]
     Active Substance: CYTARABINE
     Dosage: 3 UNK, BID
     Route: 065
  52. ARACYTINE [Suspect]
     Active Substance: CYTARABINE
     Dosage: 200 MG/M2/DAY, CYCLIC
     Route: 065

REACTIONS (12)
  - Acute graft versus host disease in intestine [Unknown]
  - Enamel anomaly [Unknown]
  - Acute graft versus host disease in skin [Unknown]
  - Chronic graft versus host disease [Unknown]
  - Tooth hypoplasia [Not Recovered/Not Resolved]
  - Skin lesion [Unknown]
  - Bronchopulmonary aspergillosis [Recovered/Resolved]
  - Mucormycosis [Unknown]
  - Gastrointestinal disorder [Unknown]
  - Tooth disorder [Unknown]
  - Product use in unapproved indication [Unknown]
  - Off label use [Unknown]
